FAERS Safety Report 9851958 (Version 3)
Quarter: 2014Q2

REPORT INFORMATION
  Report Type: Spontaneous
  Country: KR (occurrence: KR)
  Receive Date: 20140129
  Receipt Date: 20140418
  Transmission Date: 20141212
  Serious: Yes (Hospitalization, Other)
  Sender: FDA-Public Use
  Company Number: KR-JNJFOC-20140112328

PATIENT
  Age: 59 Year
  Sex: Female
  Weight: 74 kg

DRUGS (11)
  1. CAELYX [Suspect]
     Indication: OVARIAN CANCER
     Route: 042
     Dates: start: 20131223
  2. EC145 [Suspect]
     Indication: OVARIAN CANCER
     Dosage: ON DAY 1,3,5,15,17,19
     Route: 042
     Dates: start: 20131223
  3. PLACEBO [Suspect]
     Indication: OVARIAN CANCER
     Dosage: ON DAY 1,3,5,15,17,19
     Route: 042
     Dates: start: 20131223
  4. EC20 [Suspect]
     Indication: SINGLE PHOTON EMISSION COMPUTERISED TOMOGRAM
     Dosage: 22.76 MILLICURIES ONCE
     Route: 042
     Dates: start: 20131216, end: 20131216
  5. FOLIC ACID [Suspect]
     Indication: SINGLE PHOTON EMISSION COMPUTERISED TOMOGRAM
     Route: 042
     Dates: start: 20131216, end: 20131216
  6. AMLODIPINE [Concomitant]
     Indication: HYPERTENSION
     Route: 048
     Dates: start: 20131031
  7. BISOPROLOL [Concomitant]
     Indication: HYPERTENSION
     Route: 048
     Dates: start: 20131031
  8. METOCLOPRAMIDE [Concomitant]
     Indication: VOMITING
     Route: 042
     Dates: start: 20131122, end: 20131207
  9. METOCLOPRAMIDE [Concomitant]
     Indication: NAUSEA
     Route: 042
     Dates: start: 20131122, end: 20131207
  10. ACETAMINOPHEN [Concomitant]
     Indication: ABDOMINAL PAIN
     Route: 048
     Dates: start: 20131218
  11. FAMOTIDINE [Concomitant]
     Indication: DYSPEPSIA
     Route: 048
     Dates: start: 20131218

REACTIONS (5)
  - Gastrointestinal haemorrhage [Unknown]
  - Pulmonary embolism [Not Recovered/Not Resolved]
  - Deep vein thrombosis [Not Recovered/Not Resolved]
  - Pulmonary infarction [Not Recovered/Not Resolved]
  - Cerebrovascular accident [Unknown]
